FAERS Safety Report 25872183 (Version 1)
Quarter: 2025Q4

REPORT INFORMATION
  Report Type: Spontaneous
  Country: US (occurrence: US)
  Receive Date: 20251002
  Receipt Date: 20251002
  Transmission Date: 20260117
  Serious: Yes (Life-Threatening)
  Sender: ROCHE
  Company Number: US-ROCHE-10000399994

PATIENT
  Age: 13 Year
  Sex: Female

DRUGS (3)
  1. XOLAIR [Suspect]
     Active Substance: OMALIZUMAB
     Indication: Food allergy
     Route: 058
  2. XOLAIR [Suspect]
     Active Substance: OMALIZUMAB
  3. XOLAIR [Suspect]
     Active Substance: OMALIZUMAB
     Indication: Food allergy
     Route: 058

REACTIONS (2)
  - Injection site swelling [Unknown]
  - Urticaria [Unknown]
